FAERS Safety Report 10347022 (Version 1)
Quarter: 2014Q3

REPORT INFORMATION
  Report Type: Report from Study
  Country: BR (occurrence: BR)
  Receive Date: 20140729
  Receipt Date: 20140729
  Transmission Date: 20150326
  Serious: Yes (Other)
  Sender: FDA-Public Use
  Company Number: PHHY2014BR092337

PATIENT
  Sex: Female
  Weight: 49.3 kg

DRUGS (3)
  1. LEVOID [Concomitant]
     Active Substance: LEVOTHYROXINE
     Indication: THYROID DISORDER
     Dosage: UNK (50 UKN), UNK
     Dates: start: 2011
  2. SIMVASTATIN. [Concomitant]
     Active Substance: SIMVASTATIN
     Indication: BLOOD CHOLESTEROL ABNORMAL
     Dosage: UNK (20 UKN), UNK
     Dates: start: 2011
  3. DIOVAN AMLO FIX [Suspect]
     Active Substance: AMLODIPINE\VALSARTAN
     Indication: HYPERTENSION
     Dosage: 1 DF (160/5 MG), DAILY
     Route: 048
     Dates: start: 2011

REACTIONS (6)
  - Lung infection [Recovering/Resolving]
  - Blood cholesterol increased [Recovering/Resolving]
  - Pyrexia [Recovering/Resolving]
  - Viral infection [Recovering/Resolving]
  - Body height decreased [Recovering/Resolving]
  - Thyroid function test abnormal [Recovering/Resolving]
